FAERS Safety Report 9025456 (Version 1)
Quarter: 2013Q1

REPORT INFORMATION
  Report Type: Spontaneous
  Country: CA (occurrence: CA)
  Receive Date: 20130122
  Receipt Date: 20130122
  Transmission Date: 20140127
  Serious: Yes (Disabling)
  Sender: FDA-Public Use
  Company Number: CA-B.I. PHARMACEUTICALS,INC./RIDGEFIELD-2013-CN-00003CN

PATIENT
  Age: 35 Year
  Sex: Male

DRUGS (2)
  1. FLOMAX [Suspect]
     Indication: NOCTURIA
     Dates: start: 20120703, end: 20120720
  2. PROSCAR [Concomitant]
     Indication: ALOPECIA

REACTIONS (6)
  - Vision blurred [Not Recovered/Not Resolved]
  - Colour blindness acquired [Not Recovered/Not Resolved]
  - Headache [Not Recovered/Not Resolved]
  - Intraocular pressure test [Not Recovered/Not Resolved]
  - Vitreous floaters [Not Recovered/Not Resolved]
  - Halo vision [Not Recovered/Not Resolved]
